FAERS Safety Report 8186786-1 (Version None)
Quarter: 2012Q1

REPORT INFORMATION
  Report Type: 
  Country: None (occurrence: None)
  Receive Date: 20120306
  Receipt Date: 20120306
  Transmission Date: 20120608
  Serious: No
  Sender: FDA-Public Use
  Company Number: None

PATIENT
  Age: 41 Year
  Sex: Female
  Weight: 61.234 kg

DRUGS (1)
  1. BUPROPION HCL [Suspect]
     Indication: DEPRESSION
     Dosage: 150 MG
     Route: 048
     Dates: start: 20111231, end: 20120229

REACTIONS (5)
  - INSOMNIA [None]
  - AGGRESSION [None]
  - AGITATION [None]
  - WEIGHT DECREASED [None]
  - DECREASED APPETITE [None]
